FAERS Safety Report 17006429 (Version 1)
Quarter: 2019Q4

REPORT INFORMATION
  Report Type: Spontaneous
  Country: RU (occurrence: RU)
  Receive Date: 20191107
  Receipt Date: 20191107
  Transmission Date: 20200122
  Serious: Yes (Death)
  Sender: FDA-Public Use
  Company Number: RU-B.BRAUN MEDICAL INC.-2076609

PATIENT
  Age: 22 Year
  Sex: Female
  Weight: 95 kg

DRUGS (5)
  1. OXYTOCIN. [Concomitant]
     Active Substance: OXYTOCIN
     Route: 042
     Dates: start: 20191002
  2. PROCAINE ( NOVOCAINE) [Concomitant]
     Route: 023
     Dates: start: 20191002
  3. BUPICACAINE ( BUPIVACAINE-BINERGIA) [Concomitant]
     Route: 037
     Dates: start: 20191002
  4. CEFOTAXIME [Concomitant]
     Active Substance: CEFOTAXIME SODIUM
     Route: 041
     Dates: start: 20191002
  5. SODIUM CHLORIDE INJECTION USP 0264-7800-09 [Suspect]
     Active Substance: SODIUM CHLORIDE
     Dates: start: 20191002

REACTIONS (1)
  - Anaphylactic shock [None]
